FAERS Safety Report 24585751 (Version 1)
Quarter: 2024Q4

REPORT INFORMATION
  Report Type: Spontaneous
  Country: IT (occurrence: IT)
  Receive Date: 20241106
  Receipt Date: 20241106
  Transmission Date: 20250114
  Serious: Yes (Hospitalization, Other)
  Sender: MYLAN
  Company Number: IT-VELOXIS PHARMACEUTICALS, INC.-2024-VEL-00550

PATIENT
  Age: 14 Year
  Sex: Male

DRUGS (4)
  1. MYCOPHENOLATE MOFETIL [Suspect]
     Active Substance: MYCOPHENOLATE MOFETIL
     Indication: Renal transplant
     Dosage: UNK
     Route: 065
  2. EVEROLIMUS [Suspect]
     Active Substance: EVEROLIMUS
     Indication: Renal transplant
     Dosage: TARGET LEVELS 3-5 NG/ML
     Route: 065
  3. TACROLIMUS [Suspect]
     Active Substance: TACROLIMUS
     Indication: Renal transplant
     Dosage: TARGET LEVELS 2-4 NG/ML
     Route: 065
  4. CORTISONE [Suspect]
     Active Substance: CORTISONE
     Indication: Renal transplant
     Dosage: UNK
     Route: 065

REACTIONS (5)
  - Kaposi^s sarcoma [Unknown]
  - Kidney transplant rejection [Unknown]
  - Gastroenteritis cryptosporidial [Unknown]
  - Klebsiella urinary tract infection [Unknown]
  - Product use issue [Unknown]
